FAERS Safety Report 25962263 (Version 1)
Quarter: 2025Q4

REPORT INFORMATION
  Report Type: Report from Study
  Country: US (occurrence: US)
  Receive Date: 20251027
  Receipt Date: 20251027
  Transmission Date: 20260118
  Serious: Yes (Hospitalization, Other)
  Sender: BAYER HEALTHCARE PHARMACEUTICALS INC.
  Company Number: US-BAYER-2025A138424

PATIENT
  Age: 64 Year
  Sex: Male
  Weight: 57.596 kg

DRUGS (11)
  1. ADEMPAS [Suspect]
     Active Substance: RIOCIGUAT
     Indication: Pulmonary arterial hypertension
     Dosage: UNK
     Dates: start: 20250416
  2. ADEMPAS [Suspect]
     Active Substance: RIOCIGUAT
     Indication: Pulmonary arterial hypertension
     Dosage: 2.5 MG, TID
  3. ATORVASTATIN CALCIUM [Concomitant]
     Active Substance: ATORVASTATIN CALCIUM
  4. TORSEMIDE [Concomitant]
     Active Substance: TORSEMIDE
  5. ELIQUIS [Concomitant]
     Active Substance: APIXABAN
  6. POTASSIUM CHLORIDE [Concomitant]
     Active Substance: POTASSIUM CHLORIDE
  7. ASPIRIN [Concomitant]
     Active Substance: ASPIRIN
  8. ORENITRAM [Concomitant]
     Active Substance: TREPROSTINIL
  9. Digoxin pediatric [Concomitant]
  10. TRAZODONE HCL [Concomitant]
     Active Substance: TRAZODONE HYDROCHLORIDE
  11. AMBRISENTAN [Concomitant]
     Active Substance: AMBRISENTAN

REACTIONS (2)
  - Full blood count decreased [Not Recovered/Not Resolved]
  - Haemorrhage [None]

NARRATIVE: CASE EVENT DATE: 20251001
